FAERS Safety Report 15133129 (Version 4)
Quarter: 2018Q4

REPORT INFORMATION
  Report Type: Report from Study
  Country: DE (occurrence: DE)
  Receive Date: 20180712
  Receipt Date: 20181010
  Transmission Date: 20190204
  Serious: Yes (Hospitalization)
  Sender: FDA-Public Use
  Company Number: DE-TEVA-2018-DE-923084

PATIENT
  Age: 65 Year
  Sex: Male
  Weight: 104 kg

DRUGS (27)
  1. XELODA [Suspect]
     Active Substance: CAPECITABINE
     Indication: COLORECTAL CANCER
     Dosage: 3300 TO 2500 MG
     Route: 048
     Dates: start: 20130919, end: 20131003
  2. BELOC-ZOK [Concomitant]
     Active Substance: METOPROLOL SUCCINATE
     Indication: HYPERTENSION
     Route: 048
     Dates: start: 20130919
  3. FUROSEMID [Concomitant]
     Active Substance: FUROSEMIDE
     Route: 065
  4. ASPIRIN. [Concomitant]
     Active Substance: ASPIRIN
     Route: 065
  5. PANTOZOL [Concomitant]
     Active Substance: PANTOPRAZOLE SODIUM
     Dosage: 40 MILLIGRAM DAILY; DAILY DOSE: 40 MG MILLGRAM(S) EVERY DAYS
     Route: 065
  6. IRINOTECAN [Suspect]
     Active Substance: IRINOTECAN
     Indication: COLORECTAL CANCER
     Dosage: DAILY DOSE: 422 MG MILLGRAM(S) EVERY 3 WEEKS
     Route: 042
     Dates: start: 20130919, end: 20131010
  7. GLIBENCLAMID [Concomitant]
     Active Substance: GLYBURIDE
     Indication: DIABETES MELLITUS
     Route: 048
  8. FUROSEMID [Concomitant]
     Active Substance: FUROSEMIDE
     Dosage: 80 MILLIGRAM DAILY; DAILY DOSE: 80 MG MILLGRAM(S) EVERY DAYS
     Route: 065
  9. TOREM [Concomitant]
     Active Substance: TORSEMIDE
     Dosage: DAILY DOSE: 100 MG MILLIGRAM(S) EVERY DAY
     Route: 065
  10. PANTENOL [Concomitant]
     Dosage: MOUTHWASH
     Route: 065
  11. INSULIN [Concomitant]
     Active Substance: INSULIN NOS
  12. AVASTIN [Suspect]
     Active Substance: BEVACIZUMAB
     Indication: COLORECTAL CANCER METASTATIC
     Dosage: LAST DOSE PRIOR TO THE EVENT WAS GIVEN ON 10-OCT-2013
     Route: 042
     Dates: start: 20130919, end: 20131010
  13. LEVEMIR [Concomitant]
     Active Substance: INSULIN DETEMIR
     Dosage: 10 IU
     Route: 058
  14. PANTOZOL [Concomitant]
     Active Substance: PANTOPRAZOLE SODIUM
     Dosage: 80 MILLIGRAM DAILY; DAILY DOSE: 80 MG MILLGRAM(S) EVERY DAYS
     Route: 042
  15. ASPIRIN. [Concomitant]
     Active Substance: ASPIRIN
     Route: 065
  16. TEPILTA SUSPENSION [Concomitant]
     Dosage: 1 DOSAGE FORM
     Route: 065
  17. INNOHEP [Concomitant]
     Active Substance: TINZAPARIN SODIUM
     Route: 058
  18. LEVEMIR [Concomitant]
     Active Substance: INSULIN DETEMIR
     Dosage: DOSE: 24 IU
     Route: 058
  19. DIGITOXIN [Concomitant]
     Active Substance: DIGITOXIN
     Route: 065
  20. TOREM [Concomitant]
     Active Substance: TORSEMIDE
     Dosage: 100 MILLIGRAM DAILY; 0.5 DF TWICE A DAY
     Route: 065
  21. RAMIPRIL. [Concomitant]
     Active Substance: RAMIPRIL
     Indication: HYPERTENSION
     Route: 048
     Dates: start: 20130919
  22. XELODA [Suspect]
     Active Substance: CAPECITABINE
     Indication: COLORECTAL CANCER METASTATIC
     Route: 065
     Dates: start: 20130919, end: 201310
  23. AMARYL [Concomitant]
     Active Substance: GLIMEPIRIDE
     Route: 065
  24. SPIRONOLACTON [Concomitant]
     Active Substance: SPIRONOLACTONE
     Dosage: 50 MILLIGRAM DAILY; DAILY DOSE: 50 MG MILLGRAM(S) EVERY DAYS
     Route: 065
  25. FENTANYL. [Concomitant]
     Active Substance: FENTANYL
     Dosage: 75 MICROGRAM DAILY; PATCH
     Route: 065
  26. VICTOZA [Concomitant]
     Active Substance: LIRAGLUTIDE
     Dosage: 1.2 MILLIGRAM DAILY; DAILY DOSE: 1.2 MG MILLGRAM(S) EVERY DAYS
     Route: 058
  27. BELOC-ZOK [Concomitant]
     Active Substance: METOPROLOL SUCCINATE
     Route: 065

REACTIONS (7)
  - Pancytopenia [Recovered/Resolved]
  - General physical health deterioration [Recovered/Resolved]
  - Acute kidney injury [Recovered/Resolved]
  - Stomatitis [Recovered/Resolved]
  - Dysphagia [Recovered/Resolved]
  - Hyperkalaemia [Recovered/Resolved]
  - Diarrhoea [Recovered/Resolved]

NARRATIVE: CASE EVENT DATE: 201310
